FAERS Safety Report 10418395 (Version 1)
Quarter: 2014Q3

REPORT INFORMATION
  Report Type: Spontaneous
  Country: US (occurrence: None)
  Receive Date: 20140827
  Receipt Date: 20140827
  Transmission Date: 20150326
  Serious: Yes (Death, Life-Threatening, Hospitalization)
  Sender: FDA-Public Use
  Company Number: COR_00062_2014

PATIENT
  Age: 13 Year
  Sex: Male

DRUGS (4)
  1. CCNU [Suspect]
     Active Substance: LOMUSTINE
     Indication: PRODUCT USED FOR UNKNOWN INDICATION
     Route: 048
     Dates: start: 19980827
  2. CISPLATIN. [Suspect]
     Active Substance: CISPLATIN
     Indication: PRODUCT USED FOR UNKNOWN INDICATION
     Dosage: NOT OTHERWISE SPECIFIED
     Route: 042
     Dates: start: 19980824
  3. VINCRISTINE [Suspect]
     Active Substance: VINCRISTINE
     Indication: PRODUCT USED FOR UNKNOWN INDICATION
     Dosage: NOT OTHERWISE SPECIFIED
     Route: 042
     Dates: start: 19980824
  4. ETHYOL [Suspect]
     Active Substance: AMIFOSTINE
     Indication: PRODUCT USED FOR UNKNOWN INDICATION
     Dosage: NOT OTHERWISE SPECIFIED
     Route: 042
     Dates: start: 19980824

REACTIONS (18)
  - Dehydration [None]
  - Hypotension [None]
  - Rash maculo-papular [None]
  - Pyrexia [None]
  - Hepatic failure [None]
  - Stevens-Johnson syndrome [None]
  - Toxic epidermal necrolysis [None]
  - Abdominal pain [None]
  - Hypocalcaemia [None]
  - Mental disorder [None]
  - Dermatitis [None]
  - Blood test abnormal [None]
  - Hepatitis [None]
  - Hepatic steatosis [None]
  - Diarrhoea [None]
  - Coagulopathy [None]
  - Hyperglycaemia [None]
  - Muscle disorder [None]

NARRATIVE: CASE EVENT DATE: 19981010
